FAERS Safety Report 7940876-4 (Version None)
Quarter: 2011Q4

REPORT INFORMATION
  Report Type: 
  Country: None (occurrence: None)
  Receive Date: 20111114
  Receipt Date: 20110720
  Transmission Date: 20120403
  Serious: Yes (Other)
  Sender: FDA-Public Use
  Company Number: 1000021138

PATIENT
  Age: 53 Year
  Sex: Male

DRUGS (16)
  1. MAG OX (MAGNESIUM OXIDE) (MAGNESIUM OXIDE) [Concomitant]
  2. CLONIDINE [Concomitant]
  3. METOPROLOL SUCCINATE [Concomitant]
  4. FOLIC ACID [Concomitant]
  5. OMEPRAZOLE [Concomitant]
  6. PREDNISONE [Concomitant]
  7. COUMADIN (WARFARIN) (WARFARNI) [Concomitant]
  8. NEURONTIN [Concomitant]
  9. MOBIC [Concomitant]
  10. SAVELLA [Suspect]
     Indication: FIBROMYALGIA
     Dosage: SEE IMAGE
     Route: 048
     Dates: start: 20091102, end: 20091105
  11. SAVELLA [Suspect]
     Indication: FIBROMYALGIA
     Dosage: SEE IMAGE
     Route: 048
     Dates: start: 20091030, end: 20091030
  12. SAVELLA [Suspect]
     Indication: FIBROMYALGIA
     Dosage: SEE IMAGE
     Route: 048
     Dates: start: 20091106, end: 20091124
  13. SAVELLA [Suspect]
     Indication: FIBROMYALGIA
     Dosage: SEE IMAGE
     Route: 048
     Dates: start: 20091031, end: 20091101
  14. METHOTREXATE [Concomitant]
  15. LISINOPRIL [Concomitant]
  16. XANAX [Concomitant]

REACTIONS (1)
  - SUICIDAL IDEATION [None]
